FAERS Safety Report 23062387 (Version 4)
Quarter: 2023Q4

REPORT INFORMATION
  Report Type: Report from Study
  Country: US (occurrence: US)
  Receive Date: 20231013
  Receipt Date: 20231027
  Transmission Date: 20240110
  Serious: Yes (Death)
  Sender: FDA-Public Use
  Company Number: US-ABBVIE-5448418

PATIENT
  Sex: Male
  Weight: 89.9 kg

DRUGS (1)
  1. VENCLEXTA [Suspect]
     Active Substance: VENETOCLAX
     Indication: Myelodysplastic syndrome
     Dosage: TAKE FOUR TABLET(S) BY MOUTH DAILY FOR 14 DAYS FOLLOWED BY 14 DAYS OFF ?FORM STRENGTH: 100 MILLIG...
     Route: 048
     Dates: start: 20230205

REACTIONS (2)
  - Death [Fatal]
  - Off label use [Unknown]

NARRATIVE: CASE EVENT DATE: 20230101
